FAERS Safety Report 16843796 (Version 1)
Quarter: 2019Q3

REPORT INFORMATION
  Report Type: Spontaneous
  Country: BR (occurrence: BR)
  Receive Date: 20190924
  Receipt Date: 20190924
  Transmission Date: 20191005
  Serious: Yes (Death, Other)
  Sender: FDA-Public Use
  Company Number: BR-B.I. PHARMACEUTICALS,INC./RIDGEFIELD-2019-BI-103761

PATIENT

DRUGS (1)
  1. SIFROL [Suspect]
     Active Substance: PRAMIPEXOLE
     Indication: PRODUCT USED FOR UNKNOWN INDICATION
     Route: 065

REACTIONS (12)
  - Blindness [Unknown]
  - Disturbance in attention [Unknown]
  - Confusional state [Unknown]
  - Brain neoplasm [Unknown]
  - Fluid retention [Unknown]
  - Cardiovascular disorder [Unknown]
  - Thrombosis [Unknown]
  - Dyskinesia [Unknown]
  - Peripheral swelling [Unknown]
  - Cardiac disorder [Fatal]
  - Oedema [Unknown]
  - Memory impairment [Unknown]
